FAERS Safety Report 8602411-7 (Version None)
Quarter: 2012Q3

REPORT INFORMATION
  Report Type: 
  Country: None (occurrence: None)
  Receive Date: 20120817
  Receipt Date: 20120807
  Transmission Date: 20120928
  Serious: Yes (Hospitalization)
  Sender: FDA-Public Use
  Company Number: US-PFIZER INC-2012136539

PATIENT
  Age: 72 Year
  Sex: Male
  Weight: 112.5 kg

DRUGS (22)
  1. IBUPROFEN [Concomitant]
     Indication: BACK PAIN
     Dosage: 200 MG, AS NEEDED, EVERY 4-6 HOURS
     Route: 048
     Dates: start: 20090101, end: 20120612
  2. CALCIUM [Concomitant]
     Indication: SUPPLEMENTATION THERAPY
     Dosage: 1 TAB, AS NEEDED
     Route: 048
     Dates: start: 20110101, end: 20120612
  3. ASPIRIN [Concomitant]
     Indication: PROPHYLAXIS
     Dosage: 81 MG, 1X/DAY
     Route: 048
     Dates: start: 20120503
  4. SULFAMETHOXAZOLE AND TRIMETHOPRIM [Concomitant]
     Indication: URINARY TRACT INFECTION
     Dosage: 800/100, 2X/DAY
     Route: 048
     Dates: start: 20120508, end: 20120515
  5. TAMSULOSIN [Concomitant]
     Indication: BENIGN PROSTATIC HYPERPLASIA
     Dosage: 0.4 MG, 1X/DAY
     Route: 048
     Dates: start: 20120423
  6. AXITINIB [Suspect]
     Indication: PROSTATE CANCER
     Dosage: 5 MG, 2X/DAY (2 WEEKS ON, 1 WEEK OFF)
     Route: 048
     Dates: start: 20120502, end: 20120605
  7. FERROUS SULFATE [Concomitant]
     Indication: SUPPLEMENTATION THERAPY
     Dosage: 325 MG, 1X/DAY
     Route: 048
     Dates: start: 20100101, end: 20120612
  8. LASIX [Concomitant]
     Indication: OEDEMA
     Dosage: 60 MG, 1X/DAY
     Route: 048
     Dates: start: 20120201, end: 20120612
  9. LOSARTAN [Concomitant]
     Indication: HYPERTENSION
     Dosage: 25 MG, 1X/DAY
     Route: 048
     Dates: start: 20120503, end: 20120531
  10. ACETYLSALICYLIC ACID [Concomitant]
     Dosage: 325 MG, 1X/DAY
     Route: 048
     Dates: end: 20120401
  11. NITROGLYCERIN [Concomitant]
     Indication: CHEST PAIN
     Dosage: 0.4 AS NEEDED
     Route: 058
     Dates: start: 20120503
  12. LUPRON [Concomitant]
     Dosage: 30 MG, EVERY 4 MONTHS
     Route: 030
     Dates: start: 20010101
  13. SYNTHROID [Concomitant]
     Indication: HYPOTHYROIDISM
     Dosage: 125 UG, 1X/DAY
     Route: 048
     Dates: end: 20120430
  14. CLARITIN [Concomitant]
     Indication: HYPERSENSITIVITY
     Dosage: 10 MG, AS NEEDED
     Route: 048
     Dates: start: 20120516
  15. NORCO [Concomitant]
     Indication: BACK PAIN
     Dosage: 5MG/325MG, 4X/DAY, AS NEEDED
     Route: 048
     Dates: start: 20120401
  16. FISH OIL [Concomitant]
     Indication: SUPPLEMENTATION THERAPY
     Dosage: 1000 MG, 1X/DAY
     Route: 048
     Dates: start: 20100101, end: 20120612
  17. SYNTHROID [Concomitant]
     Dosage: 100 UG, 1X/DAY
     Route: 048
     Dates: start: 20120501
  18. LOSARTAN [Concomitant]
     Dosage: 50 MG, 1X/DAY
     Route: 048
     Dates: start: 20120531
  19. LORAZEPAM [Concomitant]
     Indication: NAUSEA
     Dosage: 1 MG, AS NEEDED
     Route: 048
     Dates: start: 20120516
  20. FOSAMAX [Concomitant]
     Indication: OSTEOPOROSIS
     Dosage: 70 MG, WEEKLY
     Route: 048
     Dates: start: 20100101
  21. METOPROLOL TARTRATE [Concomitant]
     Indication: HYPERTENSION
     Dosage: 50 MG, 2X/DAY
     Route: 048
     Dates: start: 20110101
  22. COMPAZINE [Concomitant]
     Indication: NAUSEA
     Dosage: 10 MG, AS NEEDED
     Route: 048
     Dates: start: 20120508

REACTIONS (3)
  - TRANSIENT ISCHAEMIC ATTACK [None]
  - HYPERTENSION [None]
  - CHEST PAIN [None]
